FAERS Safety Report 4438342-6 (Version None)
Quarter: 2004Q3

REPORT INFORMATION
  Report Type: 
  Country: None (occurrence: None)
  Receive Date: 20040831
  Receipt Date: 20040721
  Transmission Date: 20050211
  Serious: Yes (Other)
  Sender: FDA-Public Use
  Company Number: US-GLAXOSMITHKLINE-A0519248A

PATIENT
  Age: 53 Year
  Sex: Female

DRUGS (13)
  1. WELLBUTRIN [Suspect]
     Indication: DEPRESSION
     Route: 048
  2. DURAGESIC [Concomitant]
  3. XANAX [Concomitant]
  4. PREDNISONE [Concomitant]
  5. PROTONIX [Concomitant]
  6. LEXAPRO [Concomitant]
  7. KLONOPIN [Concomitant]
  8. ALTACE [Concomitant]
  9. LIPITOR [Concomitant]
  10. CLINDAMYCIN [Concomitant]
  11. LEVAQUIN [Concomitant]
  12. NEURONTIN [Concomitant]
  13. PERCOCET [Concomitant]

REACTIONS (2)
  - CONVULSION [None]
  - TREMOR [None]
